FAERS Safety Report 5867339-4 (Version None)
Quarter: 2008Q3

REPORT INFORMATION
  Report Type: 
  Country: None (occurrence: None)
  Receive Date: 20080902
  Receipt Date: 20080822
  Transmission Date: 20090109
  Serious: Yes (Hospitalization, Other)
  Sender: FDA-Public Use
  Company Number: PHHY2008FR19127

PATIENT
  Age: 85 Year
  Sex: Male

DRUGS (6)
  1. COMTAN [Suspect]
     Indication: DEMENTIA
     Dosage: 4 DF/DAY
     Dates: end: 20080401
  2. MADOPAR [Suspect]
     Dosage: 100/25 MG
     Dates: end: 20080401
  3. MADOPAR LP [Suspect]
     Dosage: 1 DF/DAY
     Dates: end: 20080401
  4. MADOPAR 62.5 [Suspect]
     Dosage: 50MG/12.5MG
     Dates: end: 20080401
  5. STALEVO 100 [Concomitant]
  6. SINEMET [Concomitant]

REACTIONS (5)
  - BRADYKINESIA [None]
  - DISORIENTATION [None]
  - DYSARTHRIA [None]
  - HYPERTONIA [None]
  - POSTURE ABNORMAL [None]
